FAERS Safety Report 11272294 (Version 5)
Quarter: 2015Q3

REPORT INFORMATION
  Report Type: Spontaneous
  Country: US (occurrence: US)
  Receive Date: 20150715
  Receipt Date: 20150901
  Transmission Date: 20151125
  Serious: Yes (Hospitalization, Other)
  Sender: FDA-Public Use
  Company Number: US-AMGEN-USASL2015069390

PATIENT
  Age: 74 Year
  Sex: Female
  Weight: 49.43 kg

DRUGS (2)
  1. ENBREL [Suspect]
     Active Substance: ETANERCEPT
     Dosage: UNK
     Route: 065
  2. ENBREL [Suspect]
     Active Substance: ETANERCEPT
     Indication: RHEUMATOID ARTHRITIS
     Dosage: 50 MG, QWK
     Route: 065
     Dates: start: 20150413

REACTIONS (8)
  - Device malfunction [Unknown]
  - Feeding disorder [Unknown]
  - Grip strength decreased [Unknown]
  - Weight decreased [Unknown]
  - Hospice care [Not Recovered/Not Resolved]
  - Arthritis [Unknown]
  - Intestinal obstruction [Recovered/Resolved]
  - Drug dose omission [Unknown]

NARRATIVE: CASE EVENT DATE: 2015
